FAERS Safety Report 7993474-0 (Version None)
Quarter: 2011Q4

REPORT INFORMATION
  Report Type: 
  Country: None (occurrence: None)
  Receive Date: 20111219
  Receipt Date: 20111212
  Transmission Date: 20120403
  Serious: Yes (Other)
  Sender: FDA-Public Use
  Company Number: CHPA2011US017960

PATIENT
  Sex: Female

DRUGS (1)
  1. BENEFIBER SUGAR FREE [Suspect]
     Indication: CONSTIPATION
     Dosage: 3 DF, QD
     Route: 048
     Dates: start: 20110601

REACTIONS (4)
  - DYSPEPSIA [None]
  - ABDOMINAL PAIN [None]
  - CHOLELITHIASIS [None]
  - OFF LABEL USE [None]
